FAERS Safety Report 6063165-4 (Version None)
Quarter: 2009Q1

REPORT INFORMATION
  Report Type: 
  Country: None (occurrence: None)
  Receive Date: 20090203
  Receipt Date: 20090122
  Transmission Date: 20090719
  Serious: Yes (Hospitalization)
  Sender: FDA-Public Use
  Company Number: FR-PFIZER INC-2009159969

PATIENT

DRUGS (19)
  1. LYRICA [Suspect]
     Dosage: 75 MG, 3X/DAY
     Route: 048
     Dates: start: 20081104
  2. GEMZAR [Suspect]
     Indication: NEOPLASM MALIGNANT
     Dosage: 2400 MG, 1X/DAY
     Route: 042
     Dates: start: 20081113
  3. AVASTIN [Suspect]
     Indication: NEOPLASM MALIGNANT
     Dosage: 1150 MG, 1X/DAY
     Route: 042
     Dates: start: 20081113
  4. LOVENOX [Concomitant]
     Dosage: UNK
  5. SOLUPRED [Concomitant]
     Dosage: UNK
     Dates: start: 20081113
  6. LEVOTHYROX [Concomitant]
     Dosage: UNK
  7. DEROXAT [Concomitant]
     Dosage: UNK
  8. RISPERDAL [Concomitant]
     Dosage: UNK
  9. MEPRONIZINE [Concomitant]
     Dosage: UNK
  10. LEXOMIL [Concomitant]
     Dosage: UNK
  11. ENDOTELON [Concomitant]
     Dosage: UNK
  12. COAPROVEL [Concomitant]
     Dosage: UNK
  13. VASTAREL [Concomitant]
     Dosage: UNK
  14. DOLIPRANE [Concomitant]
     Dosage: UNK
  15. DURAGESIC-100 [Concomitant]
     Dosage: UNK
  16. FORLAX [Concomitant]
     Dosage: UNK
  17. FEMARA [Concomitant]
     Dosage: UNK
  18. SKENAN [Concomitant]
     Dosage: UNK
  19. ACTISKENAN [Concomitant]
     Dosage: UNK

REACTIONS (1)
  - ATRIAL FIBRILLATION [None]
